FAERS Safety Report 9850298 (Version 1)
Quarter: 2014Q1

REPORT INFORMATION
  Report Type: Report from Study
  Country: US (occurrence: US)
  Receive Date: 20140128
  Receipt Date: 20140128
  Transmission Date: 20141002
  Serious: Yes (Other)
  Sender: FDA-Public Use
  Company Number: US-US-EMD SERONO, INC.-7264619

PATIENT
  Sex: Female
  Weight: 107 kg

DRUGS (8)
  1. EGRIFTA [Suspect]
     Indication: LIPODYSTROPHY ACQUIRED
     Route: 058
     Dates: end: 201308
  2. EGRIFTA [Suspect]
     Dates: start: 201312
  3. REYATAZ [Concomitant]
     Indication: HIV INFECTION
     Route: 048
  4. KADIAN [Concomitant]
     Indication: PRODUCT USED FOR UNKNOWN INDICATION
     Route: 048
  5. PROZAC [Concomitant]
     Indication: PRODUCT USED FOR UNKNOWN INDICATION
     Route: 048
  6. REGLAN                             /00041901/ [Concomitant]
     Indication: NAUSEA
  7. TIZANIDINE HYDROCHLORIDE [Concomitant]
     Indication: PRODUCT USED FOR UNKNOWN INDICATION
  8. CELEBREX [Concomitant]
     Indication: PRODUCT USED FOR UNKNOWN INDICATION

REACTIONS (10)
  - Sarcoidosis [Unknown]
  - Asthma [Unknown]
  - Back pain [Unknown]
  - Hyperlipidaemia [Unknown]
  - Dental caries [Unknown]
  - Laziness [Unknown]
  - Glucose tolerance impaired [Unknown]
  - Injection site inflammation [Unknown]
  - Injection site pruritus [Unknown]
  - Hypertension [Unknown]
